FAERS Safety Report 8435256-1 (Version None)
Quarter: 2012Q2

REPORT INFORMATION
  Report Type: 
  Country: None (occurrence: None)
  Receive Date: 20120614
  Receipt Date: 20120531
  Transmission Date: 20120825
  Serious: Yes (Other)
  Sender: FDA-Public Use
  Company Number: CH-MYLANLABS-2012S1011384

PATIENT
  Age: 49 Year
  Sex: Male

DRUGS (1)
  1. METHADONE HCL [Suspect]
     Route: 065

REACTIONS (1)
  - BILIARY DILATATION [None]
